FAERS Safety Report 12185324 (Version 1)
Quarter: 2016Q1

REPORT INFORMATION
  Report Type: Report from Study
  Country: US (occurrence: US)
  Receive Date: 20160316
  Receipt Date: 20160316
  Transmission Date: 20160526
  Serious: Yes (Hospitalization)
  Sender: FDA-Public Use
  Company Number: US-ACTELION-A-US2016-130401

PATIENT
  Age: 38 Year
  Sex: Female

DRUGS (1)
  1. VELETRI [Suspect]
     Active Substance: EPOPROSTENOL
     Indication: PULMONARY HYPERTENSION
     Dosage: 44 NG/KG, PER MIN
     Route: 042
     Dates: start: 20150406

REACTIONS (3)
  - Laceration [Unknown]
  - Syncope [Unknown]
  - Dizziness [Unknown]
